FAERS Safety Report 15984808 (Version 2)
Quarter: 2021Q4

REPORT INFORMATION
  Report Type: Spontaneous
  Country: US (occurrence: US)
  Receive Date: 20190220
  Receipt Date: 20211125
  Transmission Date: 20220303
  Serious: No
  Sender: FDA-Public Use
  Company Number: US-TEVA-2019-US-1004136

PATIENT
  Sex: Female

DRUGS (2)
  1. DOCETAXEL [Suspect]
     Active Substance: DOCETAXEL
     Indication: Nasopharyngeal cancer
     Dosage: DOSE: 150, 3 CYCLES, EVERY THREE WEEKS
     Dates: start: 20140512, end: 20140627
  2. DOCETAXEL [Suspect]
     Active Substance: DOCETAXEL
     Indication: Head and neck cancer

REACTIONS (3)
  - Madarosis [Unknown]
  - Alopecia [Unknown]
  - Alopecia areata [Unknown]
